FAERS Safety Report 9668444 (Version 1)
Quarter: 2013Q4

REPORT INFORMATION
  Report Type: Spontaneous
  Country: US (occurrence: US)
  Receive Date: 20131105
  Receipt Date: 20131105
  Transmission Date: 20140711
  Serious: Yes (Hospitalization, Other)
  Sender: FDA-Public Use
  Company Number: US-MERCK-1311USA000149

PATIENT
  Age: 65 Year
  Sex: Male

DRUGS (4)
  1. JANUVIA [Suspect]
     Indication: DIABETES MELLITUS
     Dosage: 100 MG, QD
     Route: 048
     Dates: start: 201307, end: 2013
  2. INSULIN [Concomitant]
  3. METFORMIN [Concomitant]
  4. PRECOSE [Concomitant]

REACTIONS (1)
  - Pancreatitis [Recovering/Resolving]
